FAERS Safety Report 9416803 (Version 1)
Quarter: 2013Q3

REPORT INFORMATION
  Report Type: Spontaneous
  Country: US (occurrence: US)
  Receive Date: 20130724
  Receipt Date: 20130724
  Transmission Date: 20140515
  Serious: No
  Sender: FDA-Public Use
  Company Number: US-GALDERMA-US13000566

PATIENT
  Age: 83 Year
  Sex: Female
  Weight: 73 kg

DRUGS (4)
  1. ORACEA (DOXYCYCLINE, USP) CAPSULES 40 MG [Suspect]
     Indication: ROSACEA
     Route: 048
     Dates: start: 20130213, end: 20130217
  2. VITAMINS [Concomitant]
     Route: 048
  3. ABREVA [Concomitant]
  4. COSMETICS [Concomitant]

REACTIONS (2)
  - Tremor [Recovered/Resolved]
  - Palpitations [Recovered/Resolved]
